FAERS Safety Report 9244857 (Version 1)
Quarter: 2013Q1

REPORT INFORMATION
  Report Type: Spontaneous
  Country: US (occurrence: None)
  Receive Date: 20121123
  Receipt Date: 20121123
  Transmission Date: 20140127
  Serious: No
  Sender: FDA-Public Use
  Company Number: 359359

PATIENT
  Age: 68 Year
  Sex: Male

DRUGS (3)
  1. VICTOZA LIRAGLUTIDE) SOLUTION FOR INJECTION, 6MG/ML [Suspect]
     Indication: TYPE 2 DIABETES MELLITUS
     Route: 058
     Dates: start: 2010
  2. LEVEMIR FLEXPEN (INSULIN DETEMIR  SOLUTION FOR INJECTION [Concomitant]
  3. METFORMIN (METFORMIN) [Concomitant]

REACTIONS (2)
  - Weight decreased [None]
  - Decreased appetite [None]
